FAERS Safety Report 7404565-7 (Version None)
Quarter: 2011Q2

REPORT INFORMATION
  Report Type: 
  Country: None (occurrence: None)
  Receive Date: 20110411
  Receipt Date: 20110407
  Transmission Date: 20111010
  Serious: Yes (Other)
  Sender: FDA-Public Use
  Company Number: GB-SP-2011-01933

PATIENT
  Sex: Female

DRUGS (8)
  1. IBUPROFEN [Concomitant]
  2. IMMUCYST [Suspect]
     Indication: BLADDER CANCER
     Route: 043
     Dates: start: 20110104, end: 20110208
  3. ACETAMINOPHEN AND CODEINE PHOSPHATE [Concomitant]
  4. BENDROFLUMETHIAZIDE [Concomitant]
  5. OMEPRAZOLE [Concomitant]
  6. THIAZIDE [Concomitant]
  7. ATENOLOL [Concomitant]
  8. ZAPAIN [Concomitant]
     Dosage: AS REQUIRED

REACTIONS (1)
  - RETINAL HAEMORRHAGE [None]
